FAERS Safety Report 5374457-6 (Version None)
Quarter: 2007Q2

REPORT INFORMATION
  Report Type: 
  Country: None (occurrence: None)
  Receive Date: 20070629
  Receipt Date: 20070620
  Transmission Date: 20071010
  Serious: Yes (Hospitalization)
  Sender: FDA-Public Use
  Company Number: US-JNJFOC-20070605116

PATIENT
  Sex: Female
  Weight: 41.73 kg

DRUGS (3)
  1. DURAGESIC-100 [Suspect]
     Dosage: 100UG/HR AND 50UG/HR PATCHES
     Route: 062
  2. DURAGESIC-100 [Suspect]
     Indication: PAIN
     Dosage: 100UG/HR AND 50UG/HR PATCHES
     Route: 062
  3. ACTIQ [Concomitant]
     Indication: BACK PAIN
     Route: 048

REACTIONS (6)
  - FATIGUE [None]
  - INADEQUATE ANALGESIA [None]
  - INCISION SITE INFECTION [None]
  - INCORRECT DRUG ADMINISTRATION DURATION [None]
  - NAUSEA [None]
  - WRONG TECHNIQUE IN DRUG USAGE PROCESS [None]
